FAERS Safety Report 15051169 (Version 2)
Quarter: 2020Q2

REPORT INFORMATION
  Report Type: Spontaneous
  Country: US (occurrence: US)
  Receive Date: 20180622
  Receipt Date: 20200616
  Transmission Date: 20200713
  Serious: No
  Sender: FDA-Public Use
  Company Number: US-ASTELLAS-2017US027434

PATIENT
  Age: 76 Year
  Sex: Female

DRUGS (8)
  1. MYRBETRIQ [Suspect]
     Active Substance: MIRABEGRON
     Dosage: 25 MG, ONCE DAILY (NIGHT)
     Route: 048
     Dates: start: 201703, end: 201704
  2. MYRBETRIQ [Suspect]
     Active Substance: MIRABEGRON
     Indication: URINARY INCONTINENCE
     Dosage: 25 MG, ONCE DAILY (NIGHT)
     Route: 048
     Dates: start: 20161209, end: 20170108
  3. VESICARE [Suspect]
     Active Substance: SOLIFENACIN SUCCINATE
     Dosage: 10 MG, ONCE DAILY (MORNING)
     Route: 048
     Dates: start: 201703, end: 201704
  4. VESICARE [Suspect]
     Active Substance: SOLIFENACIN SUCCINATE
     Dosage: UNK, UNKNOWN FREQ.
     Route: 065
     Dates: start: 20170808
  5. MYRBETRIQ [Suspect]
     Active Substance: MIRABEGRON
     Route: 048
  6. MYRBETRIQ [Suspect]
     Active Substance: MIRABEGRON
     Dosage: UNK UNK, UNKNOWN FREQ.
     Route: 065
     Dates: start: 20170808
  7. VESICARE [Suspect]
     Active Substance: SOLIFENACIN SUCCINATE
     Route: 048
  8. VESICARE [Suspect]
     Active Substance: SOLIFENACIN SUCCINATE
     Indication: URINARY INCONTINENCE
     Dosage: 10 MG, ONCE DAILY (MORNING)
     Route: 048
     Dates: start: 20161209, end: 20170108

REACTIONS (1)
  - Treatment noncompliance [Unknown]

NARRATIVE: CASE EVENT DATE: 20170627
